FAERS Safety Report 5262078-5 (Version None)
Quarter: 2007Q1

REPORT INFORMATION
  Report Type: 
  Country: None (occurrence: None)
  Receive Date: 20070311
  Receipt Date: 20070228
  Transmission Date: 20070707
  Serious: No
  Sender: FDA-Public Use
  Company Number: 2006UW08385

PATIENT
  Sex: Female
  Weight: 109.1 kg

DRUGS (4)
  1. SEROQUEL [Suspect]
     Indication: INSOMNIA
     Route: 048
     Dates: start: 19990101, end: 20050101
  2. HALDOL [Concomitant]
  3. RISPERDAL [Concomitant]
  4. THORAZINE [Concomitant]

REACTIONS (2)
  - CHEST PAIN [None]
  - DIABETES MELLITUS [None]
